FAERS Safety Report 9413119 (Version 1)
Quarter: 2013Q3

REPORT INFORMATION
  Report Type: Spontaneous
  Country: US (occurrence: None)
  Receive Date: 20130708
  Receipt Date: 20130708
  Transmission Date: 20140515
  Serious: Yes (Hospitalization)
  Sender: FDA-Public Use
  Company Number: AUR-APL-2013-04834

PATIENT
  Age: 73 Year
  Sex: Male

DRUGS (1)
  1. TOPIRAMATE (TOPIRAMATE) [Suspect]
     Indication: PRODUCT USED FOR UNKNOWN INDICATION

REACTIONS (10)
  - Intracranial pressure increased [None]
  - Disorientation [None]
  - Perseveration [None]
  - Headache [None]
  - Vision blurred [None]
  - Papilloedema [None]
  - Grand mal convulsion [None]
  - Subarachnoid haemorrhage [None]
  - Cerebrovascular disorder [None]
  - Arteriovenous fistula occlusion [None]
